FAERS Safety Report 21004746 (Version 1)
Quarter: 2022Q2

REPORT INFORMATION
  Report Type: Report from Study
  Country: DE (occurrence: DE)
  Receive Date: 20220624
  Receipt Date: 20220624
  Transmission Date: 20220721
  Serious: Yes (Other)
  Sender: FDA-Public Use
  Company Number: DE-Stemline Therapeutics, Inc.-2022ST000055

PATIENT
  Age: 75 Year
  Sex: Female

DRUGS (1)
  1. ELZONRIS [Suspect]
     Active Substance: TAGRAXOFUSP-ERZS
     Indication: Blastic plasmacytoid dendritic cell neoplasia
     Route: 042

REACTIONS (3)
  - Malignant neoplasm progression [Unknown]
  - Nausea [Unknown]
  - Hepatic enzyme increased [Unknown]
